FAERS Safety Report 9526595 (Version 2)
Quarter: 2013Q3

REPORT INFORMATION
  Report Type: Report from Study
  Country: US (occurrence: US)
  Receive Date: 20130916
  Receipt Date: 20130916
  Transmission Date: 20140515
  Serious: Yes (Other)
  Sender: FDA-Public Use
  Company Number: US-ABBVIE-13P-163-1132607-00

PATIENT
  Age: 52 Year
  Sex: Female

DRUGS (24)
  1. HUMIRA [Suspect]
     Indication: RHEUMATOID ARTHRITIS
     Dates: start: 201306, end: 20130724
  2. HUMIRA [Suspect]
     Dates: start: 20130821
  3. METHOTREXATE [Concomitant]
     Indication: RHEUMATOID ARTHRITIS
     Dates: end: 20130830
  4. IRON [Concomitant]
     Indication: ANAEMIA
  5. CYMBALTA [Concomitant]
     Indication: DEPRESSION
  6. COLACE [Concomitant]
     Indication: CONSTIPATION PROPHYLAXIS
  7. VITAMIN D [Concomitant]
     Indication: VITAMIN D DEFICIENCY
  8. B12 [Concomitant]
     Indication: VITAMIN B12 DECREASED
  9. HYDROCHLOROTHIAZIDE [Concomitant]
     Indication: HYPERTENSION
  10. ZOCOR [Concomitant]
     Indication: BLOOD CHOLESTEROL INCREASED
     Dates: start: 201302
  11. SINGULAIR [Concomitant]
     Indication: ASTHMA
  12. PROAIR INHALER [Concomitant]
     Indication: DYSPNOEA
     Dosage: FOUR TIMES DAILY AS NEEDED
  13. ADVAIR [Concomitant]
     Indication: ASTHMA
     Dosage: 25/50
  14. THEOPHYLLINE ER [Concomitant]
     Indication: ASTHMA
  15. MULTIVITAMIN [Concomitant]
     Indication: VITAMIN SUPPLEMENTATION
     Dosage: TAKING SINCE GASTRIC BYPASS OVER 10 YEARS AGO
  16. CALCIUM [Concomitant]
     Indication: BLOOD CALCIUM DECREASED
  17. MAGNESIUM [Concomitant]
     Indication: GASTROINTESTINAL DISORDER
  18. FOLIC ACID [Concomitant]
     Indication: VITAMIN SUPPLEMENTATION
  19. ZINC [Concomitant]
     Indication: BONE DISORDER
  20. OMEGA 3 FISH OIL [Concomitant]
     Indication: PRODUCT USED FOR UNKNOWN INDICATION
     Dosage: SINCE GASTRIC BYPASS 10 YEARS AGO
  21. MORPHINE [Concomitant]
     Indication: PAIN
  22. STEROID ANTIBACTERIALS [Concomitant]
     Indication: PRODUCT USED FOR UNKNOWN INDICATION
     Dosage: 2 PILLS PER DAY, TAPERING
  23. ZZQUIL [Concomitant]
     Indication: INSOMNIA
  24. ZZQUIL [Concomitant]
     Indication: PAIN

REACTIONS (7)
  - Pain [Recovered/Resolved]
  - Viral infection [Recovered/Resolved]
  - Local swelling [Recovered/Resolved]
  - Vomiting [Recovered/Resolved]
  - Feeling abnormal [Recovered/Resolved]
  - Diarrhoea [Recovered/Resolved]
  - Pyrexia [Recovered/Resolved]
